FAERS Safety Report 9762006 (Version 1)
Quarter: 2013Q4

REPORT INFORMATION
  Report Type: Spontaneous
  Country: US (occurrence: US)
  Receive Date: 20131216
  Receipt Date: 20131216
  Transmission Date: 20140711
  Serious: No
  Sender: FDA-Public Use
  Company Number: US-BIOGENIDEC-2013BI102897

PATIENT
  Age: 53 Year
  Sex: Female
  Weight: 29 kg

DRUGS (10)
  1. TECFIDERA [Suspect]
     Indication: PRODUCT USED FOR UNKNOWN INDICATION
     Route: 048
     Dates: end: 20131010
  2. TECFIDERA [Suspect]
     Indication: PRODUCT USED FOR UNKNOWN INDICATION
     Dates: start: 20131016
  3. EFFEXOR [Concomitant]
  4. LIPITOR [Concomitant]
  5. NEURONTIN [Concomitant]
  6. ENALAPRIL [Concomitant]
  7. WELLBUTRIN [Concomitant]
  8. VITAMIN B12 [Concomitant]
  9. FISH OIL [Concomitant]
  10. VITAMIN D3 [Concomitant]

REACTIONS (3)
  - Pyrexia [Recovered/Resolved with Sequelae]
  - Diarrhoea [Recovered/Resolved with Sequelae]
  - Vomiting [Recovered/Resolved with Sequelae]
